FAERS Safety Report 6602400-8 (Version None)
Quarter: 2010Q1

REPORT INFORMATION
  Report Type: 
  Country: None (occurrence: None)
  Receive Date: 20100225
  Receipt Date: 20100217
  Transmission Date: 20100710
  Serious: Yes (Life-Threatening, Hospitalization, Disabling)
  Sender: FDA-Public Use
  Company Number: B0634258A

PATIENT
  Sex: Female
  Weight: 43.7 kg

DRUGS (5)
  1. ARIXTRA [Suspect]
     Indication: FRACTURE
     Dosage: 2.5MG PER DAY
     Route: 058
     Dates: start: 20091109, end: 20091126
  2. KARDEGIC [Suspect]
     Indication: ARTERITIS
     Dosage: 160MG PER DAY
     Route: 048
     Dates: start: 20090813, end: 20091126
  3. LEVOTHYROX [Concomitant]
     Indication: DRUG USE FOR UNKNOWN INDICATION
     Route: 048
     Dates: start: 20090813
  4. EXELON [Concomitant]
     Dosage: 9.5MG PER DAY
     Route: 062
     Dates: start: 20090813
  5. OXYCONTIN [Concomitant]
     Indication: FRACTURE
     Dosage: 5MG TWICE PER DAY
     Route: 048
     Dates: start: 20091105

REACTIONS (2)
  - DISABILITY [None]
  - RECTAL HAEMORRHAGE [None]
